FAERS Safety Report 9514832 (Version 1)
Quarter: 2013Q1

REPORT INFORMATION
  Report Type: Spontaneous
  Country: US (occurrence: None)
  Receive Date: 20130305
  Receipt Date: 20130305
  Transmission Date: 20140127
  Serious: Yes (Other)
  Sender: FDA-Public Use
  Company Number: 163-21880-12112939

PATIENT
  Age: 75 Year
  Sex: Female
  Weight: 118.84 kg

DRUGS (14)
  1. REVLIMID [Suspect]
     Indication: PLASMA CELL MYELOMA
     Route: 048
     Dates: start: 20100818
  2. LOSARTAN-HCTZ (HYZAAR) (UNKNOWN) [Concomitant]
  3. DEXAMETHASONE (DEXAMETHASONE) (UNKNOWN) [Concomitant]
  4. FUROSEMIDE (FUROSEMIDE) (UNKNOWN) [Concomitant]
  5. ATENOLOL (ATENOLOL) (UNKNOWN) [Concomitant]
  6. METFORMIN (METFORMIN) (UNKNOWN) [Concomitant]
  7. SIMVASTATIN [Concomitant]
  8. HYDROCODONE-ACETAMINOPHEN (REMEDEINE) (UNKNOWN) [Concomitant]
  9. GLIPIZIDE (GLIPIZIDE) (UNKNOWN) [Concomitant]
  10. HYDRALAZINE (HYDRALAZINE) (UNKNOWN) [Concomitant]
  11. KLOR-CON (POTASSIUM CHLORIDE) (UNKNOWN) [Concomitant]
  12. FELODIPINE (FELODIPINE) (UNKNOWN) [Concomitant]
  13. ZETIA (EZETIMIBE) (UNKNOWN) [Concomitant]
  14. OMEPRAZOLE (OMEPRAZOLE) (UNKNOWN) [Concomitant]

REACTIONS (1)
  - Bronchitis [None]
